FAERS Safety Report 9563886 (Version 6)
Quarter: 2016Q3

REPORT INFORMATION
  Report Type: Report from Study
  Country: BR (occurrence: BR)
  Receive Date: 20130927
  Receipt Date: 20160719
  Transmission Date: 20161109
  Serious: Yes (Hospitalization)
  Sender: FDA-Public Use
  Company Number: BR-ROCHE-1243535

PATIENT
  Age: 79 Year
  Sex: Female
  Weight: 60 kg

DRUGS (11)
  1. FOLIC ACID. [Concomitant]
     Active Substance: FOLIC ACID
     Route: 065
  2. CYCLOBENZAPRINE [Concomitant]
     Active Substance: CYCLOBENZAPRINE
  3. ACTEMRA [Suspect]
     Active Substance: TOCILIZUMAB
     Indication: RHEUMATOID ARTHRITIS
     Dosage: LAST INFUSION ON 10/JAN/2014.
     Route: 042
     Dates: start: 20130401
  4. ARNICA [Concomitant]
     Active Substance: ARNICA MONTANA FLOWER
     Route: 065
  5. FLUOXETINE [Concomitant]
     Active Substance: FLUOXETINE HYDROCHLORIDE
     Route: 065
  6. PARACETAMOL [Concomitant]
     Active Substance: ACETAMINOPHEN
  7. OMEGA 3 [Concomitant]
     Active Substance: OMEGA-3 FATTY ACIDS
  8. DEFLAZACORT [Concomitant]
     Active Substance: DEFLAZACORT
     Route: 065
  9. B COMPLEX VITAMIN [Concomitant]
     Route: 065
  10. CAFFEINE. [Concomitant]
     Active Substance: CAFFEINE
     Route: 065
  11. FAMOTIDINE. [Concomitant]
     Active Substance: FAMOTIDINE

REACTIONS (13)
  - Arthralgia [Recovering/Resolving]
  - Therapeutic response decreased [Unknown]
  - Arthralgia [Not Recovered/Not Resolved]
  - Joint swelling [Not Recovered/Not Resolved]
  - Drug dose omission [Unknown]
  - Arthralgia [Recovered/Resolved]
  - Tension [Unknown]
  - Joint injury [Unknown]
  - Cataract [Unknown]
  - Neuritis [Unknown]
  - Gait disturbance [Not Recovered/Not Resolved]
  - Pain in extremity [Not Recovered/Not Resolved]
  - Back pain [Not Recovered/Not Resolved]

NARRATIVE: CASE EVENT DATE: 201310
